FAERS Safety Report 20626432 (Version 3)
Quarter: 2022Q2

REPORT INFORMATION
  Report Type: Spontaneous
  Country: US (occurrence: US)
  Receive Date: 20220323
  Receipt Date: 20220614
  Transmission Date: 20220720
  Serious: No
  Sender: FDA-Public Use
  Company Number: US-AIMMUNE THERAPEUTICS, INC.-2022AIMT00207

PATIENT

DRUGS (9)
  1. PALFORZIA [Suspect]
     Active Substance: PEANUT
     Indication: Food allergy
     Dosage: 6 MG, 1X/DAY
     Route: 048
     Dates: start: 20211203, end: 20220203
  2. PALFORZIA [Suspect]
     Active Substance: PEANUT
     Dosage: 6 MG, ONCE, DOSE CONTINUED
     Route: 048
     Dates: start: 20211217, end: 20211217
  3. PALFORZIA [Suspect]
     Active Substance: PEANUT
     Dosage: 12 MG, 1X/DAY, UP-DOSE
     Route: 048
     Dates: start: 20220204, end: 20220217
  4. PALFORZIA [Suspect]
     Active Substance: PEANUT
     Dosage: 20 MG, 1X/DAY, UP-DOSE
     Route: 048
     Dates: start: 20220218, end: 20220301
  5. PALFORZIA [Suspect]
     Active Substance: PEANUT
     Dosage: 12 MG, 1X/DAY, DOSE DECREASED
     Route: 048
     Dates: start: 20220302, end: 20220404
  6. SYMBICORT [Concomitant]
     Active Substance: BUDESONIDE\FORMOTEROL FUMARATE DIHYDRATE
     Indication: Asthma
     Dosage: UNK, 1X/DAY
     Dates: start: 202109
  7. ALBUTEROL [Concomitant]
     Active Substance: ALBUTEROL
     Indication: Asthma
     Dosage: UNK, AS NEEDED
  8. ADVAIR HFA [Concomitant]
     Active Substance: FLUTICASONE PROPIONATE\SALMETEROL XINAFOATE
     Indication: Asthma
     Dosage: 2 PUFFS, 1X/DAY
  9. ADVAIR HFA [Concomitant]
     Active Substance: FLUTICASONE PROPIONATE\SALMETEROL XINAFOATE
     Dosage: 2 PUFFS, 2X/DAY
     Dates: start: 20211217

REACTIONS (12)
  - Chest pain [Unknown]
  - Sensation of foreign body [Unknown]
  - Diarrhoea [Recovered/Resolved]
  - Decreased appetite [Unknown]
  - Weight decreased [Unknown]
  - Asthma [Unknown]
  - Chest discomfort [Unknown]
  - Wheezing [Unknown]
  - Sneezing [Unknown]
  - Abdominal discomfort [Unknown]
  - Dyspnoea [Unknown]
  - Nausea [Unknown]

NARRATIVE: CASE EVENT DATE: 20220201
